FAERS Safety Report 12100689 (Version 1)
Quarter: 2016Q1

REPORT INFORMATION
  Report Type: Spontaneous
  Country: TR (occurrence: TR)
  Receive Date: 20160222
  Receipt Date: 20160222
  Transmission Date: 20160526
  Serious: Yes (Death, Hospitalization, Other)
  Sender: FDA-Public Use
  Company Number: TR-GLAXOSMITHKLINE-TR2016GSK025116

PATIENT
  Age: 42 Year
  Sex: Female

DRUGS (1)
  1. CEFUROXIM AXETIL [Suspect]
     Active Substance: CEFUROXIME AXETIL
     Indication: PRODUCT USED FOR UNKNOWN INDICATION
     Dosage: 750 MG, UNK
     Route: 030

REACTIONS (5)
  - Metabolic acidosis [Unknown]
  - Anaphylactic reaction [Fatal]
  - Hypotension [Unknown]
  - Mental status changes [Unknown]
  - Dyspnoea [Unknown]
